FAERS Safety Report 8090826-8 (Version None)
Quarter: 2012Q1

REPORT INFORMATION
  Report Type: 
  Country: None (occurrence: None)
  Receive Date: 20120125
  Receipt Date: 20120111
  Transmission Date: 20120608
  Serious: Yes (Hospitalization)
  Sender: FDA-Public Use
  Company Number: 2012010103

PATIENT
  Age: 78 Year
  Sex: Male

DRUGS (2)
  1. FENTANYL [Suspect]
     Indication: MUSCULOSKELETAL PAIN
     Dosage: TRANSDERMAL
     Route: 062
     Dates: start: 20030101
  2. FENTANYL [Suspect]
     Indication: MUSCULOSKELETAL PAIN
     Dosage: TRANSMUCOSAL
     Dates: start: 20030101

REACTIONS (9)
  - ANXIETY [None]
  - CONDITION AGGRAVATED [None]
  - DRUG TOLERANCE [None]
  - DRUG WITHDRAWAL SYNDROME [None]
  - INSOMNIA [None]
  - PAIN [None]
  - IRRITABILITY [None]
  - DISCOMFORT [None]
  - DRUG DEPENDENCE [None]
